FAERS Safety Report 5900355-2 (Version None)
Quarter: 2008Q3

REPORT INFORMATION
  Report Type: 
  Country: None (occurrence: None)
  Receive Date: 20080926
  Receipt Date: 20080915
  Transmission Date: 20090109
  Serious: Yes (Hospitalization)
  Sender: FDA-Public Use
  Company Number: GB-PFIZER INC-2008077147

PATIENT
  Age: 72 Year
  Sex: Male

DRUGS (6)
  1. HYDROCORTISONE SODIUM SUCCINATE [Suspect]
     Route: 048
     Dates: start: 19760701
  2. ACETYLSALICYLIC ACID SRT [Concomitant]
     Dates: start: 20030301
  3. CLOPIDOGREL BISULFATE [Concomitant]
     Dates: start: 20030301
  4. FLUDROCORTISONE ACETATE [Concomitant]
     Dates: start: 19760701
  5. LIPITOR [Concomitant]
     Dates: start: 20030301
  6. RAMIPRIL [Concomitant]

REACTIONS (4)
  - BLOOD GLUCOSE INCREASED [None]
  - FOOD POISONING [None]
  - MALAISE [None]
  - PYREXIA [None]
